FAERS Safety Report 24984750 (Version 1)
Quarter: 2025Q1

REPORT INFORMATION
  Report Type: Spontaneous
  Country: US (occurrence: None)
  Receive Date: 20250219
  Receipt Date: 20250219
  Transmission Date: 20250409
  Serious: Yes (Life-Threatening, Hospitalization)
  Sender: ENCUBE ETHICALS
  Company Number: US-Encube-001652

PATIENT
  Age: 27 Year
  Sex: Female

DRUGS (10)
  1. TACROLIMUS [Suspect]
     Active Substance: TACROLIMUS
     Indication: Prophylaxis against transplant rejection
     Dosage: 0.1MG/KG/DAY
  2. BETAMETHASONE DIPROPIONATE [Suspect]
     Active Substance: BETAMETHASONE DIPROPIONATE
     Indication: Foetal disorder
  3. DARUNAVIR [Suspect]
     Active Substance: DARUNAVIR
     Indication: HIV infection
  4. RITONAVIR [Suspect]
     Active Substance: RITONAVIR
     Indication: Antiretroviral therapy
  5. MAGNESIUM SULFATE [Concomitant]
     Active Substance: MAGNESIUM SULFATE
     Indication: Eclampsia
  6. AZATHIOPRINE [Concomitant]
     Active Substance: AZATHIOPRINE
     Indication: Immunosuppression
  7. BIKTARVY [Concomitant]
     Active Substance: BICTEGRAVIR SODIUM\EMTRICITABINE\TENOFOVIR ALAFENAMIDE FUMARATE
     Indication: HIV infection
  8. JULUCA [Concomitant]
     Active Substance: DOLUTEGRAVIR SODIUM\RILPIVIRINE HYDROCHLORIDE
     Indication: HIV infection
  9. LAMIVUDINE [Concomitant]
     Active Substance: LAMIVUDINE
     Indication: Antiretroviral therapy
  10. ABACAVIR [Concomitant]
     Active Substance: ABACAVIR
     Indication: Antiretroviral therapy

REACTIONS (7)
  - Toxicity to various agents [Recovered/Resolved]
  - Drug interaction [Recovered/Resolved]
  - Maternal exposure during pregnancy [Unknown]
  - Off label use [Unknown]
  - Abdominal pain upper [Recovered/Resolved]
  - Hypertension [Recovered/Resolved]
  - Renal impairment [Recovered/Resolved]
